FAERS Safety Report 6252083-4 (Version None)
Quarter: 2009Q2

REPORT INFORMATION
  Report Type: 
  Country: None (occurrence: None)
  Receive Date: 20090630
  Receipt Date: 20051108
  Transmission Date: 20091009
  Serious: Yes (Death)
  Sender: FDA-Public Use
  Company Number: US-ROCHE-638851

PATIENT
  Sex: Female

DRUGS (12)
  1. ENFUVIRTIDE [Suspect]
     Route: 065
     Dates: start: 20050921, end: 20051104
  2. VIREAD [Concomitant]
     Dates: start: 20040413, end: 20050922
  3. KALETRA [Concomitant]
     Dates: start: 20050330, end: 20050609
  4. ZIAGEN [Concomitant]
     Dates: start: 20050330, end: 20051104
  5. EPZICOM [Concomitant]
     Dates: start: 20050609, end: 20051104
  6. REYATAZ [Concomitant]
     Dates: start: 20050609, end: 20050922
  7. VIDEX EC [Concomitant]
     Dates: start: 20050609, end: 20050922
  8. APTIVUS [Concomitant]
     Dates: start: 20050921, end: 20051017
  9. NORVIR [Concomitant]
     Dates: start: 20050922, end: 20051017
  10. BACTRIM DS [Concomitant]
     Dates: start: 20040221, end: 20051108
  11. DIFLUCAN [Concomitant]
     Dates: start: 20050331, end: 20051108
  12. LEVAQUIN [Concomitant]
     Dates: start: 20050921, end: 20050926

REACTIONS (1)
  - DEATH [None]
